FAERS Safety Report 16977435 (Version 1)
Quarter: 2019Q4

REPORT INFORMATION
  Report Type: Spontaneous
  Country: CA (occurrence: CA)
  Receive Date: 20191031
  Receipt Date: 20191031
  Transmission Date: 20200122
  Serious: Yes (Death)
  Sender: FDA-Public Use
  Company Number: CA-ROCHE-2448023

PATIENT
  Age: 63 Year
  Sex: Male
  Weight: 89 kg

DRUGS (2)
  1. COLCHICINE. [Concomitant]
     Active Substance: COLCHICINE
     Route: 065
  2. TNKASE [Suspect]
     Active Substance: TENECTEPLASE
     Indication: THROMBOLYSIS
     Dosage: ONCE, POWDER FOR SOLUTION INTRAVENOUS
     Route: 042

REACTIONS (10)
  - Cerebral haemorrhage [Fatal]
  - Corneal reflex decreased [Fatal]
  - Hydrocephalus [Fatal]
  - Hypotension [Fatal]
  - Intraventricular haemorrhage [Fatal]
  - Unresponsive to stimuli [Fatal]
  - Areflexia [Fatal]
  - Depressed level of consciousness [Fatal]
  - Brain oedema [Fatal]
  - Subarachnoid haemorrhage [Fatal]
